FAERS Safety Report 6157207-5 (Version None)
Quarter: 2009Q2

REPORT INFORMATION
  Report Type: 
  Country: None (occurrence: None)
  Receive Date: 20090416
  Receipt Date: 20090408
  Transmission Date: 20091009
  Serious: Yes (Other)
  Sender: FDA-Public Use
  Company Number: GB-MERCK-0809USA00618

PATIENT
  Age: 68 Year
  Sex: Male

DRUGS (10)
  1. ZETIA [Suspect]
     Route: 048
  2. LANSOPRAZOLE [Suspect]
     Route: 065
  3. ACIPIMOX [Suspect]
     Route: 065
  4. AMIODARONE [Suspect]
     Route: 065
  5. ASPIRIN [Suspect]
     Route: 065
  6. BISOPROLOL [Suspect]
     Route: 065
  7. DIGOXIN [Suspect]
     Route: 065
  8. FUROSEMIDE [Suspect]
     Route: 065
  9. FUROSEMIDE [Suspect]
     Route: 065
  10. PERINDOPRIL [Suspect]
     Route: 065

REACTIONS (11)
  - ATRIAL FIBRILLATION [None]
  - CARDIAC MURMUR [None]
  - DIZZINESS [None]
  - DYSPNOEA [None]
  - FATIGUE [None]
  - FEELING ABNORMAL [None]
  - LEFT VENTRICULAR DYSFUNCTION [None]
  - OEDEMA [None]
  - PARAESTHESIA [None]
  - VENOUS PRESSURE JUGULAR INCREASED [None]
  - VENTRICULAR TACHYCARDIA [None]
